FAERS Safety Report 23227803 (Version 2)
Quarter: 2023Q4

REPORT INFORMATION
  Report Type: Spontaneous
  Country: JP (occurrence: JP)
  Receive Date: 20231125
  Receipt Date: 20231212
  Transmission Date: 20240110
  Serious: Yes (Death, Life-Threatening, Hospitalization, Other)
  Sender: FDA-Public Use
  Company Number: JP-MACLEODS PHARMACEUTICALS US LTD-MAC2023044377

PATIENT

DRUGS (1)
  1. CELECOXIB [Suspect]
     Active Substance: CELECOXIB
     Indication: Arthralgia
     Dosage: UNK
     Route: 065

REACTIONS (6)
  - Vanishing bile duct syndrome [Fatal]
  - Drug-induced liver injury [Fatal]
  - Jaundice [Fatal]
  - Malaise [Not Recovered/Not Resolved]
  - Hepatic failure [Fatal]
  - Decreased appetite [Not Recovered/Not Resolved]
